FAERS Safety Report 14491047 (Version 1)
Quarter: 2018Q1

REPORT INFORMATION
  Report Type: Spontaneous
  Country: FR (occurrence: FR)
  Receive Date: 20180206
  Receipt Date: 20180206
  Transmission Date: 20180509
  Serious: Yes (Hospitalization)
  Sender: FDA-Public Use
  Company Number: FR-009507513-1801FRA014053

PATIENT
  Age: 67 Year
  Sex: Female
  Weight: 79 kg

DRUGS (15)
  1. INVANZ [Suspect]
     Active Substance: ERTAPENEM SODIUM
     Indication: ESCHERICHIA BACTERAEMIA
     Dosage: 1 G, Q12H
     Route: 058
     Dates: start: 20170919, end: 20170928
  2. REFRESH CELLUVISC [Concomitant]
     Active Substance: CARBOXYMETHYLCELLULOSE SODIUM
     Indication: DRY EYE
     Dosage: 3 DF, QD, CONCENTRATION: 4 MG/0.4ML
     Route: 047
  3. DAFALGAN [Concomitant]
     Active Substance: ACETAMINOPHEN
     Indication: PAIN
     Dosage: 1 G, UNK
     Route: 048
  4. PANTOPRAZOLE [Concomitant]
     Active Substance: PANTOPRAZOLE
     Dosage: 40 MG, QD
     Route: 048
  5. DUOTRAV [Concomitant]
     Active Substance: TIMOLOL MALEATE\TRAVOPROST
     Indication: GLAUCOMA
     Dosage: 1 DF, QD
     Route: 047
  6. AMIKACIN [Suspect]
     Active Substance: AMIKACIN
     Indication: ESCHERICHIA BACTERAEMIA
     Dosage: 3.6 G, QD
     Route: 042
     Dates: start: 20170907, end: 20170907
  7. OFLOCET (OFLOXACIN) [Suspect]
     Active Substance: OFLOXACIN
     Indication: ESCHERICHIA BACTERAEMIA
     Dosage: 400 MG, QD
     Route: 048
     Dates: start: 20170905, end: 20170906
  8. MOVICOL [Concomitant]
     Active Substance: POLYETHYLENE GLYCOL 3350\POTASSIUM CHLORIDE\SODIUM BICARBONATE\SODIUM CHLORIDE
     Indication: CONSTIPATION
     Dosage: UNK
     Route: 048
  9. METFORMIN [Concomitant]
     Active Substance: METFORMIN HYDROCHLORIDE
     Indication: TYPE 2 DIABETES MELLITUS
     Dosage: 1000 MG, QD
     Route: 048
  10. IMIPENEM AND CILASTATIN [Suspect]
     Active Substance: CILASTATIN SODIUM\IMIPENEM
     Indication: ESCHERICHIA BACTERAEMIA
     Dosage: 1 G, Q8H
     Route: 042
     Dates: start: 20170908, end: 20170919
  11. LEVETIRACETAM. [Concomitant]
     Active Substance: LEVETIRACETAM
     Indication: EPILEPSY
     Dosage: 1000 MG, QD
     Route: 048
  12. PREVISCAN (FLUINDIONE) [Concomitant]
     Active Substance: FLUINDIONE
     Dosage: SELON INR
     Route: 048
  13. CEFOXITIN [Suspect]
     Active Substance: CEFOXITIN SODIUM
     Indication: ESCHERICHIA BACTERAEMIA
     Dosage: UNK
     Route: 042
     Dates: start: 20170906, end: 20170907
  14. TOPALGIC (TRAMADOL HYDROCHLORIDE) [Concomitant]
     Active Substance: TRAMADOL HYDROCHLORIDE
     Indication: PAIN
     Dosage: 50 MG, UNK
     Route: 048
  15. IMOVANE [Concomitant]
     Active Substance: ZOPICLONE
     Dosage: 3.75 MG, AS NECESSARY
     Route: 048

REACTIONS (1)
  - Neutropenia [Recovered/Resolved]

NARRATIVE: CASE EVENT DATE: 20170908
